FAERS Safety Report 15891830 (Version 1)
Quarter: 2019Q1

REPORT INFORMATION
  Report Type: Spontaneous
  Country: US (occurrence: US)
  Receive Date: 20190130
  Receipt Date: 20190130
  Transmission Date: 20190417
  Serious: Yes (Other)
  Sender: FDA-Public Use
  Company Number: US-MYLANLABS-2019M1006500

PATIENT

DRUGS (2)
  1. NIFEDIPINE EXTENDED-RELEASE TABLETS, USP [Suspect]
     Active Substance: NIFEDIPINE
     Dosage: UNK
     Route: 048
  2. BENICAR [Concomitant]
     Active Substance: OLMESARTAN MEDOXOMIL
     Indication: HYPERTENSION

REACTIONS (4)
  - Asthenia [Not Recovered/Not Resolved]
  - Flushing [Not Recovered/Not Resolved]
  - Cataract [Not Recovered/Not Resolved]
  - Heart rate increased [Not Recovered/Not Resolved]
